FAERS Safety Report 8068147-9 (Version None)
Quarter: 2012Q1

REPORT INFORMATION
  Report Type: 
  Country: None (occurrence: None)
  Receive Date: 20120124
  Receipt Date: 20110928
  Transmission Date: 20120608
  Serious: No
  Sender: FDA-Public Use
  Company Number: US-AMGEN-USASP2011050403

PATIENT
  Age: 69 Year
  Sex: Female

DRUGS (20)
  1. PROLIA [Suspect]
     Indication: SENILE OSTEOPOROSIS
     Dosage: 60 MG, Q6MO
     Dates: start: 20110601
  2. CALCIUM CARBONATE [Concomitant]
  3. MULTI-VITAMIN [Concomitant]
     Dosage: UNK
  4. VITAMIN D [Concomitant]
  5. PRAVACHOL [Concomitant]
  6. XANAX [Concomitant]
  7. FLUOXETINE [Concomitant]
     Dosage: UNK
  8. ESTRADIOL [Concomitant]
     Dosage: 1.5 MG, UNK
  9. CALCIUM CARBONATE [Concomitant]
     Dosage: UNK
  10. CALCIUM CARBONATE [Concomitant]
  11. VITAMIN D [Concomitant]
     Dosage: UNK
  12. PRAVACHOL [Concomitant]
  13. PROCARDIA XL [Concomitant]
     Dosage: UNK
  14. DEXAMETHASONE [Concomitant]
  15. PRAVACHOL [Concomitant]
     Dosage: UNK
  16. DEXAMETHASONE [Concomitant]
     Dosage: 0.5 MG, UNK
  17. VITAMIN D [Concomitant]
  18. ESTRADIOL [Concomitant]
  19. ESTRADIOL [Concomitant]
  20. DEXAMETHASONE [Concomitant]

REACTIONS (5)
  - ARTHRALGIA [None]
  - BLOOD CALCIUM INCREASED [None]
  - FINGER DEFORMITY [None]
  - PAIN IN EXTREMITY [None]
  - CRYING [None]
